FAERS Safety Report 8187094-5 (Version None)
Quarter: 2012Q1

REPORT INFORMATION
  Report Type: 
  Country: None (occurrence: None)
  Receive Date: 20120301
  Receipt Date: 20120222
  Transmission Date: 20120608
  Serious: Yes (Life-Threatening, Hospitalization, Other)
  Sender: FDA-Public Use
  Company Number: 2011SP048230

PATIENT
  Age: 45 Year
  Sex: Female
  Weight: 81.6475 kg

DRUGS (20)
  1. MORPHINE [Suspect]
     Indication: PAIN
     Dates: start: 20101101, end: 20101101
  2. SPIRIVA [Concomitant]
  3. MIRAPEX [Concomitant]
  4. TRAMADOL HCL [Concomitant]
  5. MAGNESIUM [Concomitant]
  6. SEROQUEL XR [Suspect]
     Indication: BIPOLAR DISORDER
     Dosage: 300 MG;QPM;PO,  400 MG;QPM;PO
     Route: 048
     Dates: end: 20100901
  7. SEROQUEL XR [Suspect]
     Indication: BIPOLAR DISORDER
     Dosage: 300 MG;QPM;PO,  400 MG;QPM;PO
     Route: 048
     Dates: start: 20101101
  8. SEROQUEL XR [Suspect]
     Indication: BIPOLAR DISORDER
     Dosage: 300 MG;QPM;PO,  400 MG;QPM;PO
     Route: 048
     Dates: start: 20100901, end: 20101101
  9. SEROQUEL XR [Suspect]
     Indication: BIPOLAR DISORDER
     Dosage: 300 MG;QPM;PO,  400 MG;QPM;PO
     Route: 048
     Dates: start: 20100901, end: 20100901
  10. LUNESTA [Concomitant]
  11. TYLENOL W/ CODEINE [Concomitant]
  12. NUVARING [Suspect]
     Indication: VAGINAL HAEMORRHAGE
     Dosage: 1 DF; VAG
     Route: 067
     Dates: start: 20100911, end: 20101103
  13. NUVARING [Suspect]
     Indication: CONTRACEPTION
     Dosage: 1 DF; VAG
     Route: 067
     Dates: start: 20100911, end: 20101103
  14. FENTANYL [Concomitant]
  15. WELLBUTRIN XL [Concomitant]
  16. PRISTIQ [Concomitant]
  17. CORTISPORIN [Concomitant]
  18. ASMANEX TWISTHALER [Concomitant]
  19. NIASPAN [Concomitant]
  20. POTASSIUM [Concomitant]

REACTIONS (38)
  - IRREGULAR SLEEP PHASE [None]
  - ACUTE SINUSITIS [None]
  - FIBROMYALGIA [None]
  - CONSTIPATION [None]
  - PNEUMONIA [None]
  - PAIN IN EXTREMITY [None]
  - CONDITION AGGRAVATED [None]
  - RHINITIS [None]
  - CHRONIC OBSTRUCTIVE PULMONARY DISEASE [None]
  - PAIN [None]
  - IMPAIRED WORK ABILITY [None]
  - GASTROOESOPHAGEAL REFLUX DISEASE [None]
  - HIGH DENSITY LIPOPROTEIN DECREASED [None]
  - SUICIDAL IDEATION [None]
  - VAGINAL HAEMORRHAGE [None]
  - DIARRHOEA [None]
  - DEPRESSION [None]
  - DYSLIPIDAEMIA [None]
  - FLANK PAIN [None]
  - TACHYCARDIA [None]
  - AMNESIA [None]
  - DYSGEUSIA [None]
  - DIABETES MELLITUS [None]
  - RESTLESS LEGS SYNDROME [None]
  - VULVOVAGINITIS [None]
  - CHILLS [None]
  - LOWER RESPIRATORY TRACT INFECTION [None]
  - OVERDOSE [None]
  - PULMONARY EMBOLISM [None]
  - OVARIAN CYST [None]
  - BIPOLAR DISORDER [None]
  - MYALGIA [None]
  - ANGER [None]
  - PELVIC PAIN [None]
  - HYPERHIDROSIS [None]
  - PULMONARY ARTERIAL PRESSURE INCREASED [None]
  - PRODUCT TASTE ABNORMAL [None]
  - NARCOLEPSY [None]
